FAERS Safety Report 7475852-1 (Version None)
Quarter: 2011Q2

REPORT INFORMATION
  Report Type: 
  Country: None (occurrence: None)
  Receive Date: 20110512
  Receipt Date: 20110502
  Transmission Date: 20111010
  Serious: Yes (Hospitalization, Other)
  Sender: FDA-Public Use
  Company Number: FR-PFIZER INC-2011101007

PATIENT
  Age: 65 Year
  Sex: Male

DRUGS (11)
  1. ATACAND [Suspect]
     Route: 065
  2. KEPPRA [Suspect]
     Dosage: UNK
     Route: 048
     Dates: start: 20110228, end: 20110303
  3. MOTILIUM [Suspect]
     Dosage: UNK
     Route: 065
     Dates: start: 20110201, end: 20110224
  4. KEPPRA [Suspect]
     Indication: CONVULSION
     Dosage: UNK
     Route: 048
     Dates: start: 20101001, end: 20110228
  5. ATENOLOL [Suspect]
     Dosage: UNK
     Route: 048
  6. MEDROL [Suspect]
     Dosage: UNK
     Route: 048
     Dates: start: 20101001
  7. TEMODAL [Suspect]
     Dosage: UNK
     Route: 048
     Dates: start: 20110101, end: 20110223
  8. FUROSEMIDE [Suspect]
     Dosage: UNK
     Route: 048
     Dates: start: 20110211, end: 20110224
  9. IMOVANE [Suspect]
     Dosage: UNK
     Route: 065
     Dates: end: 20110223
  10. KALEORID [Concomitant]
  11. NEXIUM [Suspect]
     Dosage: UNK
     Route: 048
     Dates: start: 20101001, end: 20110223

REACTIONS (3)
  - HEPATIC ENZYME INCREASED [None]
  - DECREASED APPETITE [None]
  - JAUNDICE [None]
